FAERS Safety Report 8595596-2 (Version None)
Quarter: 2012Q3

REPORT INFORMATION
  Report Type: 
  Country: None (occurrence: None)
  Receive Date: 20120801
  Receipt Date: 20120717
  Transmission Date: 20120928
  Serious: Yes (Other)
  Sender: FDA-Public Use
  Company Number: 2012P1050046

PATIENT
  Age: 60 Year
  Sex: Male
  Weight: 61.2356 kg

DRUGS (6)
  1. FENTANYL-50 [Suspect]
     Indication: HEPATITIS C
     Dosage: 1 PATCH;Q2D;TDER
     Route: 062
     Dates: end: 20120720
  2. FENTANYL CITRATE [Suspect]
     Indication: HEPATITIS C
     Dates: start: 20120721
  3. FENTANYL CITRATE [Suspect]
     Indication: HEPATITIS C
     Dates: start: 20030101
  4. ZOLOFT [Concomitant]
  5. TYLENOL [Concomitant]
  6. PERCOCET [Concomitant]

REACTIONS (9)
  - DRUG EFFECT DECREASED [None]
  - FATIGUE [None]
  - DRUG WITHDRAWAL SYNDROME [None]
  - INAPPROPRIATE SCHEDULE OF DRUG ADMINISTRATION [None]
  - PAIN [None]
  - APHASIA [None]
  - NAUSEA [None]
  - PRODUCT QUALITY ISSUE [None]
  - CONSTIPATION [None]
